FAERS Safety Report 24957174 (Version 2)
Quarter: 2025Q1

REPORT INFORMATION
  Report Type: Spontaneous
  Country: ES (occurrence: ES)
  Receive Date: 20250211
  Receipt Date: 20250312
  Transmission Date: 20250408
  Serious: Yes (Death, Other)
  Sender: JOHNSON AND JOHNSON
  Company Number: ES-SAMSUNG BIOEPIS-SB-2025-04052

PATIENT
  Age: 85 Year
  Sex: Male

DRUGS (8)
  1. REMICADE [Suspect]
     Active Substance: INFLIXIMAB
     Indication: Myocarditis-myositis-myasthenia gravis overlap syndrome
     Route: 042
  2. METHYLPREDNISOLONE [Concomitant]
     Active Substance: METHYLPREDNISOLONE
     Indication: Myocarditis-myositis-myasthenia gravis overlap syndrome
     Route: 042
  3. METHYLPREDNISOLONE [Concomitant]
     Active Substance: METHYLPREDNISOLONE
     Route: 042
  4. METHYLPREDNISOLONE [Concomitant]
     Active Substance: METHYLPREDNISOLONE
     Dosage: DOSE WAS PROGRESSIVELY DECREASED FROM 120 MG/DAY;
     Route: 042
  5. METHYLPREDNISOLONE [Concomitant]
     Active Substance: METHYLPREDNISOLONE
     Dosage: TAPERED TO 40 MG/DAY AFTER 4 WEEKS;
     Route: 042
  6. PREDNISONE [Concomitant]
     Active Substance: PREDNISONE
     Indication: Myocarditis-myositis-myasthenia gravis overlap syndrome
  7. PREDNISONE [Concomitant]
     Active Substance: PREDNISONE
  8. HUMAN IMMUNOGLOBULIN G [Concomitant]
     Active Substance: HUMAN IMMUNOGLOBULIN G
     Indication: Myocarditis-myositis-myasthenia gravis overlap syndrome
     Route: 042

REACTIONS (7)
  - Dysphagia [Fatal]
  - Asthenia [Fatal]
  - Respiratory disorder [Fatal]
  - Delirium [Fatal]
  - Atrioventricular block complete [Recovered/Resolved]
  - Electrocardiogram PR prolongation [Recovered/Resolved]
  - Off label use [Unknown]
